FAERS Safety Report 4630315-3 (Version None)
Quarter: 2005Q2

REPORT INFORMATION
  Report Type: 
  Country: None (occurrence: None)
  Receive Date: 20050405
  Receipt Date: 20050405
  Transmission Date: 20051028
  Serious: Yes (Hospitalization)
  Sender: FDA-Public Use
  Company Number: None

PATIENT
  Age: 67 Year
  Sex: Female
  Weight: 67 kg

DRUGS (7)
  1. PACLITAXEL [Suspect]
     Indication: OVARIAN CANCER
     Dosage: 310 MG IV 3 WEEKLY
     Route: 042
     Dates: start: 20040906, end: 20050110
  2. CARBOPLATIN [Suspect]
     Dosage: 660 MG IV 3 WEEKLY
     Route: 042
     Dates: start: 20040906, end: 20050110
  3. DEXAMETHASONE [Concomitant]
  4. MAXOLON [Concomitant]
  5. SOMAC [Concomitant]
  6. PARACETAMOL [Concomitant]
  7. ATACAND [Concomitant]

REACTIONS (11)
  - ANAEMIA [None]
  - BLOOD POTASSIUM DECREASED [None]
  - DEHYDRATION [None]
  - DIZZINESS [None]
  - FEELING ABNORMAL [None]
  - LETHARGY [None]
  - LOSS OF CONSCIOUSNESS [None]
  - NEPHROPATHY TOXIC [None]
  - RENAL FAILURE ACUTE [None]
  - SYNCOPE [None]
  - TACHYCARDIA [None]
